FAERS Safety Report 23914710 (Version 1)
Quarter: 2024Q2

REPORT INFORMATION
  Report Type: Spontaneous
  Country: CN (occurrence: CN)
  Receive Date: 20240529
  Receipt Date: 20240529
  Transmission Date: 20240715
  Serious: Yes (Other)
  Sender: FDA-Public Use
  Company Number: CN-002147023-NVSC2024CN112693

PATIENT
  Age: 65 Year
  Sex: Male
  Weight: 56 kg

DRUGS (4)
  1. SACUBITRIL\VALSARTAN [Suspect]
     Active Substance: SACUBITRIL\VALSARTAN
     Indication: Aortic aneurysm
     Dosage: 50 MG, BID
     Route: 048
     Dates: start: 20240508, end: 20240511
  2. SACUBITRIL\VALSARTAN [Suspect]
     Active Substance: SACUBITRIL\VALSARTAN
     Dosage: 25 MG, BID
     Route: 048
     Dates: start: 20240511
  3. METOPROLOL [Suspect]
     Active Substance: METOPROLOL
     Indication: Aortic aneurysm
     Dosage: 23.75 MG, QD (SUSTAINED-RELEASE TABLETS)
     Route: 048
     Dates: start: 20240508, end: 20240511
  4. AMLODIPINE BESYLATE [Suspect]
     Active Substance: AMLODIPINE BESYLATE
     Indication: Aortic aneurysm
     Dosage: 5 MG, QD
     Route: 048
     Dates: start: 20240508, end: 20240511

REACTIONS (2)
  - Hypotension [Recovering/Resolving]
  - Dizziness [Unknown]

NARRATIVE: CASE EVENT DATE: 20240511
